FAERS Safety Report 17837056 (Version 1)
Quarter: 2020Q2

REPORT INFORMATION
  Report Type: Spontaneous
  Country: IT (occurrence: IT)
  Receive Date: 20200528
  Receipt Date: 20200528
  Transmission Date: 20200714
  Serious: Yes (Hospitalization)
  Sender: FDA-Public Use
  Company Number: IT-BAUSCH-BL-2020-015325

PATIENT
  Age: 49 Year
  Sex: Male

DRUGS (3)
  1. PIPERACILLINA/TAZOBACTAM [Suspect]
     Active Substance: PIPERACILLIN SODIUM\TAZOBACTAM SODIUM
     Indication: PNEUMONITIS
     Route: 042
     Dates: start: 20200326, end: 20200404
  2. CEFEPIME [Suspect]
     Active Substance: CEFEPIME HYDROCHLORIDE
     Indication: PNEUMONITIS
     Route: 042
     Dates: start: 20200320, end: 20200326
  3. GENTAMICIN. [Suspect]
     Active Substance: GENTAMICIN
     Indication: PNEUMONITIS
     Route: 042
     Dates: start: 20200330, end: 20200402

REACTIONS (6)
  - Eosinophilia [Recovering/Resolving]
  - Pyrexia [Recovering/Resolving]
  - Lymphocyte morphology abnormal [Recovering/Resolving]
  - Troponin increased [Recovering/Resolving]
  - Petechiae [Recovering/Resolving]
  - Drug eruption [Recovering/Resolving]

NARRATIVE: CASE EVENT DATE: 20200407
